FAERS Safety Report 4515047-4 (Version None)
Quarter: 2004Q4

REPORT INFORMATION
  Report Type: 
  Country: None (occurrence: None)
  Receive Date: 20041129
  Receipt Date: 20041129
  Transmission Date: 20050328
  Serious: Yes (Other)
  Sender: FDA-Public Use
  Company Number: None

PATIENT
  Age: 32 Year
  Sex: Female
  Weight: 72.5755 kg

DRUGS (1)
  1. FIORICET W/ CODEINE [Suspect]
     Indication: MIGRAINE
     Dosage: 2 4 HOURS ORAL
     Route: 048
     Dates: start: 20040701, end: 20041127

REACTIONS (2)
  - DRUG INEFFECTIVE [None]
  - HEADACHE [None]
